FAERS Safety Report 23426917 (Version 2)
Quarter: 2025Q1

REPORT INFORMATION
  Report Type: Report from Study
  Country: AU (occurrence: AU)
  Receive Date: 20240122
  Receipt Date: 20250129
  Transmission Date: 20250409
  Serious: Yes (Disabling, Other)
  Sender: ROCHE
  Company Number: AU-ROCHE-3141171

PATIENT
  Age: 71 Year
  Sex: Female

DRUGS (10)
  1. OCREVUS [Suspect]
     Active Substance: OCRELIZUMAB
     Indication: Multiple sclerosis
     Dosage: DATE OF INITIAL DOSE APPROXIMATELY 3 YEARS AGO
     Route: 040
     Dates: start: 20220713, end: 20220713
  2. OCREVUS [Suspect]
     Active Substance: OCRELIZUMAB
     Route: 040
     Dates: start: 20240115
  3. OCREVUS [Suspect]
     Active Substance: OCRELIZUMAB
     Route: 040
  4. OCREVUS [Suspect]
     Active Substance: OCRELIZUMAB
     Route: 040
  5. OCREVUS [Suspect]
     Active Substance: OCRELIZUMAB
     Route: 040
  6. RIVAROXABAN [Concomitant]
     Active Substance: RIVAROXABAN
     Dosage: COATED TABLET
  7. SOTALOL HYDROCHLORIDE [Concomitant]
     Active Substance: SOTALOL HYDROCHLORIDE
     Route: 048
  8. AMLODIPINE [Concomitant]
     Active Substance: AMLODIPINE BESYLATE
     Route: 048
  9. DARIFENACIN [Concomitant]
     Active Substance: DARIFENACIN
  10. ROSUVASTATIN [Concomitant]
     Active Substance: ROSUVASTATIN
     Route: 048

REACTIONS (5)
  - Mobility decreased [Not Recovered/Not Resolved]
  - Neuropathy peripheral [Not Recovered/Not Resolved]
  - Gait disturbance [Not Recovered/Not Resolved]
  - Asthenia [Not Recovered/Not Resolved]
  - Osteopenia [Unknown]
